FAERS Safety Report 8172529-4 (Version None)
Quarter: 2012Q1

REPORT INFORMATION
  Report Type: 
  Country: None (occurrence: None)
  Receive Date: 20120227
  Receipt Date: 20120227
  Transmission Date: 20120608
  Serious: Yes (Death)
  Sender: FDA-Public Use
  Company Number: None

PATIENT
  Age: 77 Year
  Sex: Female
  Weight: 66 kg

DRUGS (3)
  1. CHOLESTYRAMINE-ASPARATAME [Concomitant]
  2. LISINOPRIL [Concomitant]
  3. NITROFURANTOIN [Suspect]
     Dosage: 100MG/DAY PO
     Route: 048
     Dates: end: 20100202

REACTIONS (3)
  - ACUTE HEPATIC FAILURE [None]
  - LIVER INJURY [None]
  - MENTAL STATUS CHANGES [None]
